FAERS Safety Report 7769352-9 (Version None)
Quarter: 2011Q3

REPORT INFORMATION
  Report Type: 
  Country: None (occurrence: None)
  Receive Date: 20110920
  Receipt Date: 20110909
  Transmission Date: 20111222
  Serious: Yes (Hospitalization)
  Sender: FDA-Public Use
  Company Number: US-001954

PATIENT
  Sex: Male
  Weight: 14 kg

DRUGS (1)
  1. NAGLAZYME [Suspect]
     Indication: MUCOPOLYSACCHARIDOSIS VI
     Dosage: (1 MG/KG1X/WEEK INTRAVENOUS DRIP)
     Route: 041
     Dates: start: 20090911

REACTIONS (6)
  - FALL [None]
  - ARTHRALGIA [None]
  - ARTHRITIS INFECTIVE [None]
  - SPONDYLOEPIPHYSEAL DYSPLASIA [None]
  - PAIN [None]
  - GAIT DISTURBANCE [None]
